FAERS Safety Report 23876086 (Version 3)
Quarter: 2024Q2

REPORT INFORMATION
  Report Type: Spontaneous
  Country: DE (occurrence: DE)
  Receive Date: 20240520
  Receipt Date: 20240624
  Transmission Date: 20240716
  Serious: Yes (Hospitalization, Other)
  Sender: FDA-Public Use
  Company Number: DE-SAMSUNG BIOEPIS-SB-2023-34297

PATIENT
  Age: 67 Year
  Sex: Female
  Weight: 45 kg

DRUGS (10)
  1. PEMBROLIZUMAB [Suspect]
     Active Substance: PEMBROLIZUMAB
     Indication: Oesophageal adenocarcinoma
     Dosage: 200 MG, FLAT DOSE
     Route: 042
     Dates: start: 20231208, end: 20231208
  2. OXALIPLATIN [Suspect]
     Active Substance: OXALIPLATIN
     Indication: Oesophageal adenocarcinoma
     Dosage: 117 MG
     Route: 042
     Dates: start: 20231208, end: 20231208
  3. OXALIPLATIN [Suspect]
     Active Substance: OXALIPLATIN
     Dosage: 89 MILLIGRAM
     Route: 042
     Dates: start: 20240110, end: 20240110
  4. ONTRUZANT [Suspect]
     Active Substance: TRASTUZUMAB-DTTB
     Indication: Oesophageal adenocarcinoma
     Dosage: 8 MG/KG (D1 344 MG)
     Route: 042
     Dates: start: 20231208, end: 20231208
  5. DOCETAXEL [Suspect]
     Active Substance: DOCETAXEL\DOCETAXEL ANHYDROUS
     Indication: Oesophageal adenocarcinoma
     Dosage: 69 MG
     Route: 042
     Dates: start: 20231208, end: 20231208
  6. DOCETAXEL [Suspect]
     Active Substance: DOCETAXEL\DOCETAXEL ANHYDROUS
     Dosage: 53 MILLIGRAM
     Route: 042
     Dates: start: 20240110, end: 20240110
  7. LEUCOVORIN [Suspect]
     Active Substance: LEUCOVORIN\LEUCOVORIN CALCIUM
     Indication: Oesophageal adenocarcinoma
     Dosage: 276 MG, 280 MG
     Route: 042
     Dates: start: 20231208, end: 20231208
  8. LEUCOVORIN [Suspect]
     Active Substance: LEUCOVORIN\LEUCOVORIN CALCIUM
     Dosage: 280 MILLIGRAM
     Route: 042
     Dates: start: 20240110
  9. FLUOROURACIL [Suspect]
     Active Substance: FLUOROURACIL
     Indication: Oesophageal adenocarcinoma
     Dosage: 3588 MG
     Route: 042
     Dates: start: 20231208, end: 20231208
  10. FLUOROURACIL [Suspect]
     Active Substance: FLUOROURACIL
     Dosage: 2730 MILLIGRAM
     Route: 042
     Dates: start: 20240110, end: 20240110

REACTIONS (10)
  - Diarrhoea [Recovered/Resolved]
  - Pyrexia [Recovered/Resolved]
  - Prerenal failure [Unknown]
  - Chills [Recovered/Resolved]
  - COVID-19 [Recovered/Resolved]
  - Exposure to SARS-CoV-2 [Unknown]
  - Product use in unapproved indication [Unknown]
  - Immune-mediated adverse reaction [Unknown]
  - Toxicity to various agents [Unknown]
  - Inflammatory marker increased [Unknown]

NARRATIVE: CASE EVENT DATE: 20231218
